FAERS Safety Report 22340936 (Version 2)
Quarter: 2024Q1

REPORT INFORMATION
  Report Type: Report from Study
  Country: US (occurrence: US)
  Receive Date: 20230518
  Receipt Date: 20240308
  Transmission Date: 20240410
  Serious: Yes (Other)
  Sender: FDA-Public Use
  Company Number: US-JAZZ PHARMACEUTICALS-2023-US-006201

PATIENT
  Age: 65 Year
  Sex: Female

DRUGS (20)
  1. XYREM [Suspect]
     Active Substance: SODIUM OXYBATE
     Indication: Narcolepsy
     Dosage: UNK
  2. XYREM [Suspect]
     Active Substance: SODIUM OXYBATE
     Indication: Cataplexy
  3. XYREM [Suspect]
     Active Substance: SODIUM OXYBATE
     Indication: Somnolence
  4. ESTRADIOL [Suspect]
     Active Substance: ESTRADIOL
     Indication: Product used for unknown indication
     Dosage: UNK
  5. CELEBREX [Concomitant]
     Active Substance: CELECOXIB
     Indication: Product used for unknown indication
     Dosage: UNK
     Dates: start: 20170119
  6. ALLEGRA ALLERGY [Concomitant]
     Active Substance: FEXOFENADINE HYDROCHLORIDE
     Indication: Product used for unknown indication
     Dosage: UNK
     Dates: start: 20180101
  7. FLONASE ALLERGY RELIEF [Concomitant]
     Active Substance: FLUTICASONE PROPIONATE
     Indication: Product used for unknown indication
     Dosage: UNK
     Dates: start: 20190101
  8. SAVELLA [Concomitant]
     Active Substance: MILNACIPRAN HYDROCHLORIDE
     Indication: Product used for unknown indication
     Dosage: UNK
     Dates: start: 20200101
  9. OSTEO BI-FLEX [CHONDROITIN SULFATE;GLUCOSAMINE HYDROCHLORIDE] [Concomitant]
     Indication: Product used for unknown indication
     Dosage: CAPLET
     Dates: start: 20150101
  10. TURMERIC 15800 COMPLEX [Concomitant]
     Indication: Product used for unknown indication
     Dosage: UNK
     Dates: start: 20200101
  11. PROBIOTIC BLEND [Concomitant]
     Indication: Product used for unknown indication
     Dosage: UNK
     Dates: start: 20210101
  12. DOCUSATE SODIUM [Concomitant]
     Active Substance: DOCUSATE SODIUM
     Indication: Product used for unknown indication
     Dosage: UNK
     Dates: start: 20190101
  13. MIRALAX [Concomitant]
     Active Substance: POLYETHYLENE GLYCOL 3350
     Indication: Product used for unknown indication
     Dosage: UNK
     Dates: start: 20220601
  14. DIGESTIVE ENZYMES [BETAINE HYDROCHLORIDE;BROMELAINS;CELLULASE;PANCREAT [Concomitant]
     Indication: Product used for unknown indication
     Dosage: UNK
     Dates: start: 20220101
  15. MINERALS\VITAMINS [Concomitant]
     Active Substance: MINERALS\VITAMINS
     Indication: Product used for unknown indication
     Dosage: SOFTGEL
     Dates: start: 20150101
  16. RETAINE MGD [Concomitant]
     Active Substance: LIGHT MINERAL OIL\MINERAL OIL
     Indication: Product used for unknown indication
     Dosage: UNK
     Dates: start: 20200101
  17. BIOTIN [Concomitant]
     Active Substance: BIOTIN
     Indication: Product used for unknown indication
     Dosage: UNK
     Dates: start: 20200101
  18. GEBAUER^S SPRAY AND STRETCH [Concomitant]
     Indication: Product used for unknown indication
     Dosage: UNK
     Dates: start: 20130101
  19. SODIUM SULFACETAMIDE [Concomitant]
     Active Substance: SULFACETAMIDE SODIUM
     Indication: Product used for unknown indication
     Dosage: UNK
     Dates: start: 20210101
  20. IPRATROPIUM [Concomitant]
     Active Substance: IPRATROPIUM
     Indication: Product used for unknown indication
     Dosage: UNK
     Dates: start: 20230606

REACTIONS (13)
  - Macular degeneration [Unknown]
  - Acute respiratory distress syndrome [Unknown]
  - Upper respiratory tract infection [Unknown]
  - Osteoporosis [Unknown]
  - Dry eye [Unknown]
  - Sinus tachycardia [Recovered/Resolved]
  - Fungal infection [Unknown]
  - Breast swelling [Unknown]
  - Breast tenderness [Unknown]
  - Vaginal haemorrhage [Unknown]
  - Food intolerance [Unknown]
  - Bronchitis [Unknown]
  - Product administration interrupted [Unknown]

NARRATIVE: CASE EVENT DATE: 20200101
